FAERS Safety Report 4576437-7 (Version None)
Quarter: 2005Q1

REPORT INFORMATION
  Report Type: 
  Country: None (occurrence: None)
  Receive Date: 20050207
  Receipt Date: 20050125
  Transmission Date: 20050727
  Serious: Yes (Death, Other)
  Sender: FDA-Public Use
  Company Number: 2005019459

PATIENT
  Age: 81 Year
  Sex: Male

DRUGS (8)
  1. GLADEM (SERTRALINE) [Suspect]
     Indication: DEPRESSION
     Dosage: 50 MG, ORAL
     Route: 048
     Dates: start: 20000920, end: 20000927
  2. INDOMETHACIN [Suspect]
     Indication: HEADACHE
     Dosage: ORAL
     Route: 048
  3. LISINOPRIL [Concomitant]
  4. TORSEMIDE [Concomitant]
  5. GINKGO BILOBA EXTRACT  (GINKGO BILOBA EXTRACT) [Concomitant]
  6. OMEPRAZOLE [Concomitant]
  7. RANITIDINE [Concomitant]
  8. ACETYLSALICYLIC ACID SRT [Concomitant]

REACTIONS (3)
  - MULTI-ORGAN FAILURE [None]
  - RENAL FAILURE [None]
  - TOXIC EPIDERMAL NECROLYSIS [None]
